FAERS Safety Report 25877459 (Version 2)
Quarter: 2025Q4

REPORT INFORMATION
  Report Type: Report from Study
  Country: CA (occurrence: CA)
  Receive Date: 20251003
  Receipt Date: 20251219
  Transmission Date: 20260118
  Serious: No
  Sender: ASTELLAS
  Company Number: CA-ASTELLAS-2025-AER-054445

PATIENT
  Age: 58 Year
  Sex: Female

DRUGS (1)
  1. VEOZAH [Suspect]
     Active Substance: FEZOLINETANT
     Indication: Menopausal symptoms
     Route: 048
     Dates: end: 2025

REACTIONS (3)
  - Liver disorder [Unknown]
  - Aspartate aminotransferase increased [Unknown]
  - Gamma-glutamyltransferase increased [Unknown]

NARRATIVE: CASE EVENT DATE: 20250729
